FAERS Safety Report 15931897 (Version 2)
Quarter: 2019Q1

REPORT INFORMATION
  Report Type: Report from Study
  Country: None (occurrence: HU)
  Receive Date: 20190207
  Receipt Date: 20190212
  Transmission Date: 20190417
  Serious: Yes (Hospitalization)
  Sender: FDA-Public Use
  Company Number: HU-ABBVIE-19S-076-2652969-00

PATIENT
  Age: 77 Year
  Sex: Male

DRUGS (4)
  1. DUODOPA [Suspect]
     Active Substance: CARBIDOPA\LEVODOPA
     Dosage: MD 4.5 ML; CD DAY 4.1 ML/H; ED 1.0 ML
     Route: 050
     Dates: end: 201812
  2. DUODOPA [Suspect]
     Active Substance: CARBIDOPA\LEVODOPA
     Indication: PARKINSON^S DISEASE
     Dosage: MD1.0 ML; CD DAY 3.9 ML/H; CD NIGHT: 1.8 ML/H; ED 1.0 ML
     Route: 050
     Dates: start: 201210
  3. DUODOPA [Suspect]
     Active Substance: CARBIDOPA\LEVODOPA
     Dosage: 24-HOUR-TREATMENT
     Route: 050
  4. PANTOPRAZOLE [Concomitant]
     Active Substance: PANTOPRAZOLE
     Indication: PROPHYLAXIS
     Route: 048

REACTIONS (10)
  - Device dislocation [Unknown]
  - Blood pressure fluctuation [Recovering/Resolving]
  - Abdominal pain [Recovered/Resolved]
  - Device loosening [Recovered/Resolved]
  - Parkinson^s disease [Unknown]
  - Delirium [Recovering/Resolving]
  - Mental impairment [Not Recovered/Not Resolved]
  - Mobility decreased [Not Recovered/Not Resolved]
  - Decreased appetite [Recovering/Resolving]
  - Restlessness [Recovering/Resolving]

NARRATIVE: CASE EVENT DATE: 2018
